FAERS Safety Report 20767042 (Version 1)
Quarter: 2022Q2

REPORT INFORMATION
  Report Type: Other
  Country: NO (occurrence: NO)
  Receive Date: 20220429
  Receipt Date: 20220429
  Transmission Date: 20220721
  Serious: Yes (Other)
  Sender: FDA-Public Use
  Company Number: NO-CELLTRION INC.-2022NO004908

PATIENT

DRUGS (1)
  1. INFLIXIMAB [Suspect]
     Active Substance: INFLIXIMAB
     Indication: Juvenile idiopathic arthritis
     Dosage: THE PATIENT HAS USED INFLIXIMAB FOR SEVERAL YEARS.
     Route: 042

REACTIONS (2)
  - Autoimmune hepatitis [Recovering/Resolving]
  - Off label use [Unknown]
